FAERS Safety Report 13927072 (Version 3)
Quarter: 2019Q1

REPORT INFORMATION
  Report Type: Spontaneous
  Country: US (occurrence: US)
  Receive Date: 20170901
  Receipt Date: 20190301
  Transmission Date: 20190417
  Serious: Yes (Other)
  Sender: FDA-Public Use
  Company Number: US-PFIZER INC-2017376353

PATIENT
  Sex: Female

DRUGS (4)
  1. LYRICA [Suspect]
     Active Substance: PREGABALIN
     Dosage: 300 MG, 1X/DAY
     Route: 048
  2. LYRICA [Suspect]
     Active Substance: PREGABALIN
     Indication: FIBROMYALGIA
     Dosage: 150 MG, (150MG PILLS 5 TIMES A DAY/750MG ALL TOGETHER)
  3. LYRICA [Suspect]
     Active Substance: PREGABALIN
     Dosage: 750 MG, DAILY (3 TABS PO IN MORNING/QAM. 2 TABS PO IN AFTERNOON/QPM)
     Route: 048
  4. LYRICA [Suspect]
     Active Substance: PREGABALIN
     Indication: PAIN
     Dosage: UNK

REACTIONS (8)
  - Anxiety [Recovered/Resolved]
  - Pain [Recovered/Resolved]
  - Foot fracture [Not Recovered/Not Resolved]
  - Drug withdrawal syndrome [Recovered/Resolved]
  - Tremor [Recovered/Resolved]
  - Panic reaction [Recovered/Resolved]
  - Hyperhidrosis [Recovered/Resolved]
  - Overdose [Unknown]

NARRATIVE: CASE EVENT DATE: 2011
